FAERS Safety Report 18172195 (Version 2)
Quarter: 2020Q4

REPORT INFORMATION
  Report Type: Spontaneous
  Country: PL (occurrence: PL)
  Receive Date: 20200820
  Receipt Date: 20201119
  Transmission Date: 20210113
  Serious: No
  Sender: FDA-Public Use
  Company Number: PL-JNJFOC-20200806103

PATIENT
  Age: 59 Year
  Sex: Female

DRUGS (27)
  1. KETOPROFEN. [Suspect]
     Active Substance: KETOPROFEN
     Indication: PAIN
     Dosage: 100 MG, PER DAY
     Route: 065
     Dates: start: 201704
  2. MORPHINE SULFATE. [Suspect]
     Active Substance: MORPHINE SULFATE
     Dosage: 36 MG, DAILY (GRADUALLY INCREASED)
     Route: 058
     Dates: start: 201710, end: 201806
  3. DEXAMETHASONE. [Suspect]
     Active Substance: DEXAMETHASONE
     Indication: PAIN
     Route: 065
     Dates: start: 201710, end: 201806
  4. NALOXONE W/OXYCODONE [Suspect]
     Active Substance: NALOXONE HYDROCHLORIDE\OXYCODONE HYDROCHLORIDE
     Dosage: 60 MG/30 MG DAILY
     Route: 065
     Dates: start: 201708
  5. MORPHINE SULFATE. [Suspect]
     Active Substance: MORPHINE SULFATE
     Indication: CANCER PAIN
     Dosage: 30 MG, DAILY
     Route: 065
  6. OXYCODONE [Suspect]
     Active Substance: OXYCODONE
     Dosage: 20 MG, PER DAY
     Route: 065
     Dates: start: 201708
  7. PREGABALIN. [Suspect]
     Active Substance: PREGABALIN
     Dosage: 150 MG, DAILY
     Route: 065
     Dates: start: 201708
  8. BUPRENORPHINE. [Suspect]
     Active Substance: BUPRENORPHINE
     Indication: PAIN
     Dosage: 52.5 G/HR
     Route: 062
     Dates: start: 201704
  9. LACTULOSE. [Concomitant]
     Active Substance: LACTULOSE
     Indication: PRODUCT USED FOR UNKNOWN INDICATION
     Route: 065
     Dates: start: 201704
  10. OXYCODONE [Suspect]
     Active Substance: OXYCODONE
     Indication: PAIN
     Dosage: 30 MG, PER DAY
     Route: 065
     Dates: start: 201710, end: 201806
  11. OXYCODONE [Suspect]
     Active Substance: OXYCODONE
     Dosage: 20 MG, PER DAY, PROLONGED RELEASE
     Route: 065
     Dates: start: 201704
  12. FENTANYL. [Suspect]
     Active Substance: FENTANYL
     Indication: CANCER PAIN
     Dosage: 150 MCG, Q1H
     Route: 062
     Dates: start: 201710, end: 201806
  13. FENTANYL. [Suspect]
     Active Substance: FENTANYL
     Dosage: 100 MCG, Q1H
     Route: 062
  14. PREGABALIN. [Suspect]
     Active Substance: PREGABALIN
     Dosage: 300 MG, DAILY
     Route: 065
  15. PREGABALIN. [Suspect]
     Active Substance: PREGABALIN
     Indication: CANCER PAIN
     Dosage: 450 MG, DAILY
     Route: 065
     Dates: start: 201710, end: 201806
  16. PREGABALIN. [Suspect]
     Active Substance: PREGABALIN
     Dosage: 75 MG, DAILY
     Route: 065
     Dates: start: 201704
  17. METHADONE [Concomitant]
     Active Substance: METHADONE HYDROCHLORIDE
     Dosage: 2 MG, TID (GRADUALLY INCREASED OVER 2 WEEKS)
     Route: 065
  18. PARACETAMOL [Suspect]
     Active Substance: ACETAMINOPHEN
     Dosage: PERIODICALLY
     Route: 065
     Dates: start: 201710, end: 201806
  19. DULOXETINE. [Suspect]
     Active Substance: DULOXETINE
     Indication: PAIN
     Dosage: 60 MG, DAILY
     Route: 065
     Dates: start: 201710, end: 201806
  20. FENTANYL. [Suspect]
     Active Substance: FENTANYL
     Dosage: 100 MCG, Q1H
     Route: 062
     Dates: start: 201708
  21. ZOLEDRONIC ACID. [Concomitant]
     Active Substance: ZOLEDRONIC ACID
     Indication: PRODUCT USED FOR UNKNOWN INDICATION
     Dosage: 4 MG, EVERY 28 DAYS
     Route: 042
     Dates: start: 201708
  22. METAMIZOLE [Suspect]
     Active Substance: METAMIZOLE
     Indication: PAIN
     Dosage: PERIODICALLY
     Route: 065
     Dates: start: 201710, end: 201806
  23. NALOXONE W/OXYCODONE [Suspect]
     Active Substance: NALOXONE HYDROCHLORIDE\OXYCODONE HYDROCHLORIDE
     Indication: CANCER PAIN
     Dosage: 40 MG/20 MG DAILY
     Route: 065
     Dates: start: 201710, end: 201806
  24. PARACETAMOL [Suspect]
     Active Substance: ACETAMINOPHEN
     Indication: PAIN
     Dosage: 3 G, DAILY
     Route: 065
     Dates: start: 201704
  25. MORPHINE [Suspect]
     Active Substance: MORPHINE
     Indication: PAIN
     Dosage: 60 MG, PER DAY, IMMEDIATE RELEASE
     Route: 065
     Dates: start: 201704
  26. METHADONE [Concomitant]
     Active Substance: METHADONE HYDROCHLORIDE
     Indication: PRODUCT USED FOR UNKNOWN INDICATION
     Dosage: 10 MG, TID
     Route: 065
  27. CALCIUM D3 /01483701/ [Concomitant]
     Active Substance: CALCIUM\CHOLECALCIFEROL
     Indication: PRODUCT USED FOR UNKNOWN INDICATION
     Route: 065

REACTIONS (5)
  - Drug ineffective [Unknown]
  - Constipation [Unknown]
  - Depressed mood [Unknown]
  - Off label use [Recovered/Resolved]
  - Decreased appetite [Unknown]
